FAERS Safety Report 4512535-1 (Version None)
Quarter: 2004Q4

REPORT INFORMATION
  Report Type: 
  Country: None (occurrence: None)
  Receive Date: 20041008
  Receipt Date: 20040827
  Transmission Date: 20050328
  Serious: Yes (Other)
  Sender: FDA-Public Use
  Company Number: 350517

PATIENT
  Age: 42 Year
  Sex: Male
  Weight: 65.8 kg

DRUGS (4)
  1. FUZEON [Suspect]
     Indication: HIV INFECTION
     Dosage: SUBCUTANEOUS
     Route: 058
     Dates: start: 20031015
  2. ANTIVIRAL (ANTIVIRAL AGENT NOS) [Concomitant]
  3. BACTRIM [Concomitant]
  4. FACTOR VIII (ANTIHEMOPHILIC FACTOR) [Concomitant]

REACTIONS (10)
  - CHEST PAIN [None]
  - CONTUSION [None]
  - HAEMORRHAGE [None]
  - INJECTION SITE PAIN [None]
  - INJECTION SITE PRURITUS [None]
  - INJECTION SITE REACTION [None]
  - MEDICATION ERROR [None]
  - PRODUCTIVE COUGH [None]
  - PULMONARY OEDEMA [None]
  - WHITE BLOOD CELL COUNT DECREASED [None]
